FAERS Safety Report 7337384-0 (Version None)
Quarter: 2011Q1

REPORT INFORMATION
  Report Type: 
  Country: None (occurrence: None)
  Receive Date: 20110308
  Receipt Date: 20110308
  Transmission Date: 20110831
  Serious: No
  Sender: FDA-Public Use
  Company Number: None

PATIENT

DRUGS (1)
  1. ALCOHOL SWABS 70% WALGREEN [Suspect]
     Indication: PREOPERATIVE CARE
     Dates: start: 20110110, end: 20110214

REACTIONS (1)
  - RASH [None]
